FAERS Safety Report 5137139-1 (Version None)
Quarter: 2006Q4

REPORT INFORMATION
  Report Type: 
  Country: None (occurrence: None)
  Receive Date: 20061030
  Receipt Date: 20050802
  Transmission Date: 20070319
  Serious: No
  Sender: FDA-Public Use
  Company Number: US-GLAXOSMITHKLINE-A0568639A

PATIENT
  Age: 42 Year
  Sex: Female

DRUGS (2)
  1. ADVAIR HFA [Suspect]
     Indication: DRUG USE FOR UNKNOWN INDICATION
     Route: 055
     Dates: start: 20010101, end: 20050101
  2. XANAX [Concomitant]

REACTIONS (6)
  - COUGH [None]
  - DYSKINESIA [None]
  - DYSPHAGIA [None]
  - DYSPHONIA [None]
  - RESTLESSNESS [None]
  - THROAT TIGHTNESS [None]
